FAERS Safety Report 10040556 (Version 1)
Quarter: 2014Q1

REPORT INFORMATION
  Report Type: Spontaneous
  Country: GB (occurrence: GB)
  Receive Date: 20140327
  Receipt Date: 20140327
  Transmission Date: 20141002
  Serious: Yes (Other)
  Sender: FDA-Public Use
  Company Number: GB-009507513-1403GBR008757

PATIENT
  Age: 75 Year
  Sex: Male

DRUGS (3)
  1. SIMVASTATIN [Suspect]
     Dosage: UNK
     Route: 048
     Dates: start: 2007, end: 2014
  2. OMEPRAZOLE [Suspect]
     Dosage: UNK
     Route: 048
     Dates: start: 2012
  3. ACITRETIN [Suspect]
     Indication: PUSTULAR PSORIASIS
     Dosage: UNK
     Route: 048
     Dates: start: 2011, end: 201312

REACTIONS (8)
  - Erythema [Unknown]
  - Liver function test abnormal [Recovering/Resolving]
  - Arthralgia [Recovering/Resolving]
  - Granuloma annulare [Recovering/Resolving]
  - Induration [Recovering/Resolving]
  - Local swelling [Recovering/Resolving]
  - Rash [Recovered/Resolved with Sequelae]
  - Skin plaque [Recovering/Resolving]
